FAERS Safety Report 5126285-4 (Version None)
Quarter: 2006Q4

REPORT INFORMATION
  Report Type: 
  Country: None (occurrence: None)
  Receive Date: 20061012
  Receipt Date: 20061010
  Transmission Date: 20070319
  Serious: Yes (Life-Threatening, Disabling)
  Sender: FDA-Public Use
  Company Number: GB-MERCK-0610GBR00088

PATIENT
  Age: 79 Year
  Sex: Female
  Weight: 50 kg

DRUGS (20)
  1. ZOCOR [Suspect]
     Indication: HYPERCHLORAEMIA
     Route: 048
     Dates: start: 20060724, end: 20060805
  2. CALCIUM CARBONATE AND CHOLECALCIFEROL [Concomitant]
     Route: 065
  3. AMLODIPINE BESYLATE [Concomitant]
     Route: 065
  4. CETOSTEARYL ALCOHOL AND PHENOXYETHANOL AND SODIUM LAURYL SULFATE [Concomitant]
     Route: 061
  5. BECLOMETHASONE DIPROPIONATE [Concomitant]
     Route: 055
  6. CANDESARTAN CILEXETIL [Concomitant]
     Route: 065
  7. CARVEDILOL [Concomitant]
     Route: 065
  8. CLOPIDOGREL BISULFATE [Concomitant]
     Route: 065
  9. CLOTRIMAZOLE [Concomitant]
     Route: 061
  10. FUROSEMIDE [Concomitant]
     Route: 065
  11. NITROGLYCERIN [Concomitant]
     Route: 055
  12. IPRATROPIUM BROMIDE [Concomitant]
     Route: 055
  13. LEVOTHYROXINE SODIUM [Concomitant]
     Route: 065
  14. LEVOTHYROXINE SODIUM [Concomitant]
     Route: 065
  15. LORATADINE [Concomitant]
     Route: 065
  16. OMEPRAZOLE [Concomitant]
     Route: 065
  17. ACETAMINOPHEN [Concomitant]
     Route: 065
  18. ALBUTEROL [Concomitant]
     Route: 055
  19. SENNA [Concomitant]
     Route: 065
  20. FELBINAC [Concomitant]
     Route: 061

REACTIONS (4)
  - BLOOD CREATINE PHOSPHOKINASE INCREASED [None]
  - GAIT DISTURBANCE [None]
  - MYOSITIS [None]
  - PAIN IN EXTREMITY [None]
